FAERS Safety Report 8767507 (Version 4)
Quarter: 2012Q4

REPORT INFORMATION
  Report Type: 
  Country: ES (occurrence: ES)
  Receive Date: 20120904
  Receipt Date: 20121114
  Transmission Date: 20130627
  Serious: Yes (Hospitalization, Other)
  Sender: FDA-Public Use
  Company Number: ES-UCBSA-064731

PATIENT
  Age: 26 Year
  Sex: Male

DRUGS (4)
  1. VIMPAT [Suspect]
     Indication: EPILEPSY
     Dates: start: 2012
  2. CARBAMAZEPINE [Concomitant]
     Indication: PARTIAL SEIZURES
  3. TROBALT [Concomitant]
     Indication: EPILEPSY
     Dates: start: 20120221
  4. ESLICARBAZEPINE [Concomitant]
     Indication: EPILEPSY
     Dosage: DAILY DOSE :1200 MG

REACTIONS (2)
  - Pleural effusion [Not Recovered/Not Resolved]
  - Hodgkin^s disease [Not Recovered/Not Resolved]
